FAERS Safety Report 8558017-1 (Version None)
Quarter: 2012Q3

REPORT INFORMATION
  Report Type: 
  Country: None (occurrence: None)
  Receive Date: 20120801
  Receipt Date: 20120725
  Transmission Date: 20120928
  Serious: Yes (Other)
  Sender: FDA-Public Use
  Company Number: US-BAYER-2012-053917

PATIENT
  Age: 62 Year
  Sex: Female

DRUGS (2)
  1. NEXAVAR [Suspect]
     Indication: HEPATIC NEOPLASM MALIGNANT
     Dosage: 400 MG, BID
     Dates: start: 20110901, end: 20110101
  2. NEXAVAR [Suspect]
     Dosage: 200 MG, QOD (1 PILL EVERY OTHER DAY)
     Dates: start: 20120401

REACTIONS (3)
  - ATRIAL FIBRILLATION [None]
  - DRY SKIN [None]
  - FATIGUE [None]
